FAERS Safety Report 4551851-4 (Version None)
Quarter: 2005Q1

REPORT INFORMATION
  Report Type: 
  Country: None (occurrence: None)
  Receive Date: 20050111
  Receipt Date: 20050105
  Transmission Date: 20050727
  Serious: Yes (Life-Threatening)
  Sender: FDA-Public Use
  Company Number: 2005-123969-NL

PATIENT
  Age: 42 Year
  Sex: Female

DRUGS (1)
  1. MIRTAZAPINE [Suspect]
     Dosage: 40 DF, ORAL
     Route: 048
     Dates: start: 19981002, end: 19990324

REACTIONS (4)
  - ALCOHOL USE [None]
  - DRUG SCREEN POSITIVE [None]
  - OVERDOSE [None]
  - SUICIDE ATTEMPT [None]
